FAERS Safety Report 6818482-4 (Version None)
Quarter: 2010Q3

REPORT INFORMATION
  Report Type: 
  Country: None (occurrence: None)
  Receive Date: 20100706
  Receipt Date: 20080604
  Transmission Date: 20110219
  Serious: No
  Sender: FDA-Public Use
  Company Number: US-PFIZER INC-2008047444

PATIENT
  Age: 23 Month
  Weight: 23 kg

DRUGS (3)
  1. AZITHROMYCIN [Suspect]
     Dates: start: 20080602, end: 20080603
  2. XOPENEX [Concomitant]
  3. DEXAMETHASONE [Concomitant]

REACTIONS (2)
  - INCORRECT DOSE ADMINISTERED [None]
  - VOMITING [None]
